FAERS Safety Report 21119759 (Version 8)
Quarter: 2025Q1

REPORT INFORMATION
  Report Type: Report from Study
  Country: JP (occurrence: JP)
  Receive Date: 20220722
  Receipt Date: 20250313
  Transmission Date: 20250409
  Serious: Yes (Other)
  Sender: GILEAD
  Company Number: JP-GILEAD-2022-0590657

PATIENT
  Age: 74 Year
  Sex: Male

DRUGS (5)
  1. AXICABTAGENE CILOLEUCEL [Suspect]
     Active Substance: AXICABTAGENE CILOLEUCEL
     Indication: Diffuse large B-cell lymphoma
     Route: 042
     Dates: start: 20220624, end: 20220624
  2. CYCLOPHOSPHAMIDE [Concomitant]
     Active Substance: CYCLOPHOSPHAMIDE
     Indication: Lymphodepletion
     Route: 065
  3. CYCLOPHOSPHAMIDE [Concomitant]
     Active Substance: CYCLOPHOSPHAMIDE
     Indication: Chemotherapy
  4. FLUDARABINE [Concomitant]
     Active Substance: FLUDARABINE PHOSPHATE
     Indication: Lymphodepletion
  5. FLUDARABINE [Concomitant]
     Active Substance: FLUDARABINE PHOSPHATE
     Indication: Chemotherapy

REACTIONS (17)
  - Thrombocytopenia [Recovered/Resolved]
  - Cytokine release syndrome [Recovered/Resolved]
  - Delirium [Recovered/Resolved]
  - Depressed level of consciousness [Recovered/Resolved]
  - Loss of consciousness [Unknown]
  - Immune effector cell-associated neurotoxicity syndrome [Recovered/Resolved]
  - Hypogammaglobulinaemia [Not Recovered/Not Resolved]
  - Hypoxia [Recovered/Resolved]
  - Cognitive disorder [Recovered/Resolved]
  - Cognitive disorder [Unknown]
  - Disorientation [Recovered/Resolved]
  - Pyrexia [Recovered/Resolved]
  - Neutrophil count decreased [Recovered/Resolved]
  - Amnestic disorder [Unknown]
  - Confusional state [Unknown]
  - Personality change [Recovered/Resolved]
  - Personality change [Unknown]

NARRATIVE: CASE EVENT DATE: 20220625
